FAERS Safety Report 9989521 (Version 2)
Quarter: 2014Q1

REPORT INFORMATION
  Report Type: Report from Study
  Country: US (occurrence: US)
  Receive Date: 20140310
  Receipt Date: 20140310
  Transmission Date: 20141002
  Serious: No
  Sender: FDA-Public Use
  Company Number: US-ABBVIE-13P-163-1116147-00

PATIENT
  Age: 53 Year
  Sex: Male

DRUGS (13)
  1. HUMIRA [Suspect]
     Indication: CROHN^S DISEASE
     Dates: start: 20130429
  2. SIMVASTATIN [Concomitant]
     Indication: BLOOD CHOLESTEROL INCREASED
  3. ZOLOFT [Concomitant]
     Indication: DEPRESSION
  4. LAMICTAL [Concomitant]
     Indication: AFFECTIVE DISORDER
  5. GLUMETZA [Concomitant]
     Indication: DIABETES MELLITUS
  6. LEVEMIR [Concomitant]
     Indication: DIABETES MELLITUS
     Dosage: EVERY AM
  7. 6-MP [Concomitant]
     Indication: CROHN^S DISEASE
  8. PREDNISONE [Concomitant]
     Indication: PRODUCT USED FOR UNKNOWN INDICATION
  9. ZYRTEC [Concomitant]
     Indication: PRODUCT USED FOR UNKNOWN INDICATION
     Dosage: ODT
  10. COLAZAL [Concomitant]
     Indication: PRODUCT USED FOR UNKNOWN INDICATION
  11. MERCAPTOPURINE [Concomitant]
  12. LAMOTRIGINE [Concomitant]
  13. GLUMETZA [Concomitant]

REACTIONS (4)
  - Vitamin B12 deficiency [Unknown]
  - Clostridium difficile infection [Recovering/Resolving]
  - Injection site pain [Unknown]
  - Vitamin D deficiency [Unknown]
